FAERS Safety Report 8800116 (Version 3)
Quarter: 2013Q2

REPORT INFORMATION
  Report Type: Spontaneous
  Country: GB (occurrence: GB)
  Receive Date: 20120921
  Receipt Date: 20130529
  Transmission Date: 20140414
  Serious: Yes (Death, Other)
  Sender: FDA-Public Use
  Company Number: GB-BRISTOL-MYERS SQUIBB COMPANY-16394934

PATIENT
  Age: 36 Year
  Sex: Male

DRUGS (8)
  1. ARIPIPRAZOLE [Suspect]
     Indication: SCHIZOPHRENIA
     Route: 048
     Dates: end: 20120108
  2. ZAPONEX [Suspect]
     Indication: SCHIZOPHRENIA
     Route: 048
     Dates: start: 20070510, end: 20120108
  3. ZOCOR [Suspect]
     Route: 048
     Dates: end: 20120108
  4. CLONAZEPAM [Concomitant]
     Dates: end: 20120108
  5. FOLIC ACID [Concomitant]
  6. OMEPRAZOLE [Concomitant]
     Dates: end: 20120124
  7. VALPROATE SODIUM [Concomitant]
     Dates: end: 20120108
  8. WARFARIN [Concomitant]
     Dates: end: 20120108

REACTIONS (23)
  - Neuroleptic malignant syndrome [Fatal]
  - Peritonitis [Fatal]
  - Large intestine perforation [Fatal]
  - Multi-organ failure [Fatal]
  - Sepsis [Fatal]
  - Blood creatine phosphokinase increased [Unknown]
  - Renal impairment [Unknown]
  - Hepatic function abnormal [Unknown]
  - Circulatory collapse [Unknown]
  - Anaemia [Unknown]
  - Generalised oedema [Not Recovered/Not Resolved]
  - Arteriosclerosis [Not Recovered/Not Resolved]
  - Cerebral arteriosclerosis [Not Recovered/Not Resolved]
  - Diabetes mellitus [Unknown]
  - Haemorrhage [Not Recovered/Not Resolved]
  - Hyperosmolar state [Unknown]
  - Otitis externa [Not Recovered/Not Resolved]
  - Renal disorder [Not Recovered/Not Resolved]
  - Pulmonary oedema [Not Recovered/Not Resolved]
  - Liver injury [Not Recovered/Not Resolved]
  - Hepatomegaly [Not Recovered/Not Resolved]
  - Obesity [Unknown]
  - Splenomegaly [Not Recovered/Not Resolved]
